FAERS Safety Report 14960101 (Version 1)
Quarter: 2018Q2

REPORT INFORMATION
  Report Type: Report from Study
  Country: US (occurrence: US)
  Receive Date: 20180531
  Receipt Date: 20180531
  Transmission Date: 20180711
  Serious: No
  Sender: FDA-Public Use
  Company Number: US-AMGEN-USASL2017192229

PATIENT
  Age: 54 Year
  Sex: Male

DRUGS (1)
  1. REPATHA [Suspect]
     Active Substance: EVOLOCUMAB
     Indication: HYPERCHOLESTEROLAEMIA
     Dosage: 140 MG, Q2WK
     Route: 058
     Dates: end: 201709

REACTIONS (6)
  - Arthralgia [Unknown]
  - Inflammation [Unknown]
  - Abdominal discomfort [Unknown]
  - Rhinorrhoea [Unknown]
  - Headache [Unknown]
  - Myalgia [Unknown]
